FAERS Safety Report 12799934 (Version 1)
Quarter: 2016Q3

REPORT INFORMATION
  Report Type: Spontaneous
  Country: US (occurrence: US)
  Receive Date: 20160930
  Receipt Date: 20160930
  Transmission Date: 20161109
  Serious: Yes (Other)
  Sender: FDA-Public Use
  Company Number: US-AMGEN-USASP2016120586

PATIENT
  Age: 71 Year
  Sex: Female
  Weight: 49.43 kg

DRUGS (2)
  1. PROLIA [Suspect]
     Active Substance: DENOSUMAB
     Indication: OSTEOPOROSIS
     Dosage: 60 MG/1.0 ML, Q6MO
     Route: 058
     Dates: start: 20151203
  2. PROLIA [Suspect]
     Active Substance: DENOSUMAB
     Dosage: 60 MG/ML, Q6MO
     Route: 058
     Dates: start: 20160812

REACTIONS (2)
  - Feeling abnormal [Recovered/Resolved]
  - Alopecia [Recovered/Resolved]
